FAERS Safety Report 4483864-5 (Version None)
Quarter: 2004Q4

REPORT INFORMATION
  Report Type: 
  Country: None (occurrence: None)
  Receive Date: 20041025
  Receipt Date: 20041014
  Transmission Date: 20050328
  Serious: Yes (Other)
  Sender: FDA-Public Use
  Company Number: GB-JNJFOC-20041003996

PATIENT
  Age: 93 Year
  Sex: Female
  Weight: 58 kg

DRUGS (3)
  1. RISPERDAL [Suspect]
     Route: 049
  2. ASPIRIN [Concomitant]
     Route: 065
  3. CALCICHEW [Concomitant]
     Indication: FALL
     Route: 065

REACTIONS (3)
  - CONFUSIONAL STATE [None]
  - DELUSION [None]
  - DRUG INEFFECTIVE [None]
